FAERS Safety Report 5457507-8 (Version None)
Quarter: 2007Q3

REPORT INFORMATION
  Report Type: 
  Country: None (occurrence: None)
  Receive Date: 20070918
  Receipt Date: 20070302
  Transmission Date: 20080115
  Serious: No
  Sender: FDA-Public Use
  Company Number: US-ASTRAZENECA-2007UW04093

PATIENT
  Age: 44 Year
  Sex: Male

DRUGS (2)
  1. SEROQUEL [Suspect]
     Indication: SCHIZOAFFECTIVE DISORDER
     Route: 048
  2. SINEQUAN [Suspect]
     Route: 048

REACTIONS (3)
  - DRUG PRESCRIBING ERROR [None]
  - ILL-DEFINED DISORDER [None]
  - SEDATION [None]
